FAERS Safety Report 8390837-9 (Version None)
Quarter: 2012Q2

REPORT INFORMATION
  Report Type: 
  Country: None (occurrence: None)
  Receive Date: 20120529
  Receipt Date: 20120514
  Transmission Date: 20120825
  Serious: Yes (Other)
  Sender: FDA-Public Use
  Company Number: US-ASTELLAS-2012US004985

PATIENT

DRUGS (3)
  1. ENZASTAURIN [Suspect]
     Dosage: 500 MG, UID/QD
     Route: 048
  2. ENZASTAURIN [Suspect]
     Indication: NON-SMALL CELL LUNG CANCER
     Dosage: 250 MG, UID/QD
     Route: 048
  3. ERLOTINIB HYDROCHLORIDE [Suspect]
     Indication: NON-SMALL CELL LUNG CANCER
     Dosage: 150 MG, UID/QD
     Route: 048

REACTIONS (3)
  - DRUG INTERACTION [None]
  - ATAXIA [None]
  - DIPLOPIA [None]
